FAERS Safety Report 12470207 (Version 1)
Quarter: 2016Q2

REPORT INFORMATION
  Report Type: Report from Study
  Country: US (occurrence: US)
  Receive Date: 20160616
  Receipt Date: 20160616
  Transmission Date: 20160815
  Serious: Yes (Other)
  Sender: FDA-Public Use
  Company Number: US-AMGEN-USASL2016074510

PATIENT
  Age: 78 Year
  Sex: Female

DRUGS (1)
  1. ENBREL [Suspect]
     Active Substance: ETANERCEPT
     Indication: RHEUMATOID ARTHRITIS
     Dosage: 50 MG, QWK
     Route: 065

REACTIONS (8)
  - Coma [Recovered/Resolved]
  - Discomfort [Unknown]
  - Cerebrovascular accident [Unknown]
  - Foot deformity [Unknown]
  - Pain [Unknown]
  - Finger deformity [Unknown]
  - Aphasia [Unknown]
  - Joint swelling [Unknown]

NARRATIVE: CASE EVENT DATE: 20151228
